FAERS Safety Report 7761701-0 (Version None)
Quarter: 2011Q3

REPORT INFORMATION
  Report Type: 
  Country: None (occurrence: None)
  Receive Date: 20110920
  Receipt Date: 20110909
  Transmission Date: 20111222
  Serious: Yes (Disabling, Other)
  Sender: FDA-Public Use
  Company Number: US-KINGPHARMUSA00001-K201100970

PATIENT
  Sex: Female
  Weight: 57.143 kg

DRUGS (2)
  1. EPIPEN [Suspect]
     Indication: ARTHROPOD STING
     Dosage: 0.3 MG, SINGLE
     Route: 030
     Dates: start: 20110401, end: 20110401
  2. BENADRYL [Concomitant]
     Indication: ARTHROPOD STING
     Dosage: 2 DF, SINGLE
     Route: 048
     Dates: start: 20110401, end: 20110401

REACTIONS (8)
  - GAIT DISTURBANCE [None]
  - INJECTION SITE PAIN [None]
  - PAIN IN EXTREMITY [None]
  - OEDEMA PERIPHERAL [None]
  - MUSCULOSKELETAL DISCOMFORT [None]
  - NERVE INJURY [None]
  - ACTIVITIES OF DAILY LIVING IMPAIRED [None]
  - JOINT CREPITATION [None]
